FAERS Safety Report 6457403-3 (Version None)
Quarter: 2009Q4

REPORT INFORMATION
  Report Type: 
  Country: None (occurrence: None)
  Receive Date: 20091125
  Receipt Date: 20091123
  Transmission Date: 20100525
  Serious: Yes (Hospitalization)
  Sender: FDA-Public Use
  Company Number: US-B.I. PHARMACEUTICALS,INC./RIDGEFIELD-2009-BP-13632BP

PATIENT
  Sex: Male

DRUGS (8)
  1. SPIRIVA [Suspect]
     Indication: EMPHYSEMA
     Dosage: 18 MCG
     Route: 055
     Dates: start: 20060101
  2. ZANTAC [Concomitant]
     Indication: GASTROOESOPHAGEAL REFLUX DISEASE
  3. PLAVIX [Concomitant]
     Indication: MYOCARDIAL INFARCTION
  4. FUROSEMIDE [Concomitant]
     Indication: MYOCARDIAL INFARCTION
  5. STARLIX [Concomitant]
     Indication: DIABETES MELLITUS
  6. ACTOS [Concomitant]
     Indication: DIABETES MELLITUS
  7. LIPITOR [Concomitant]
     Indication: BLOOD CHOLESTEROL INCREASED
  8. ACTIVITE [Concomitant]
     Indication: VITAMIN SUPPLEMENTATION

REACTIONS (2)
  - MYOCARDIAL INFARCTION [None]
  - URINARY TRACT INFECTION [None]
